FAERS Safety Report 7683727-8 (Version None)
Quarter: 2011Q3

REPORT INFORMATION
  Report Type: 
  Country: None (occurrence: None)
  Receive Date: 20110815
  Receipt Date: 20110804
  Transmission Date: 20111222
  Serious: Yes (Hospitalization)
  Sender: FDA-Public Use
  Company Number: MY-JNJFOC-20110712290

PATIENT
  Sex: Male
  Weight: 61 kg

DRUGS (5)
  1. LORAZEPAM [Concomitant]
     Indication: SALIVARY HYPERSECRETION
     Dates: start: 20110704, end: 20110708
  2. PALIPERIDONE [Suspect]
     Indication: SCHIZOPHRENIA
     Route: 030
     Dates: start: 20101227
  3. PALIPERIDONE [Suspect]
     Route: 030
     Dates: start: 20110602, end: 20110602
  4. PALIPERIDONE [Suspect]
     Route: 030
     Dates: start: 20110704
  5. ARTANE [Concomitant]
     Indication: SALIVARY HYPERSECRETION
     Dates: start: 20110307

REACTIONS (6)
  - SUICIDAL IDEATION [None]
  - HYPOPHAGIA [None]
  - POOR PERSONAL HYGIENE [None]
  - PSYCHOTIC DISORDER [None]
  - POOR QUALITY SLEEP [None]
  - CONDITION AGGRAVATED [None]
